FAERS Safety Report 8045665-0 (Version None)
Quarter: 2012Q1

REPORT INFORMATION
  Report Type: 
  Country: None (occurrence: None)
  Receive Date: 20120110
  Receipt Date: 20111227
  Transmission Date: 20120608
  Serious: Yes (Life-Threatening, Hospitalization, Other)
  Sender: FDA-Public Use
  Company Number: 2011MA018139

PATIENT
  Age: 66 Year
  Sex: Female

DRUGS (1)
  1. PHENYTOIN [Suspect]
     Indication: CONVULSION PROPHYLAXIS
     Dosage: PO
     Route: 048

REACTIONS (7)
  - ACUTE RESPIRATORY FAILURE [None]
  - MENINGITIS [None]
  - DRUG HYPERSENSITIVITY [None]
  - PYREXIA [None]
  - RENAL FAILURE ACUTE [None]
  - MENTAL STATUS CHANGES [None]
  - MULTI-ORGAN FAILURE [None]
